FAERS Safety Report 6694482-2 (Version None)
Quarter: 2010Q2

REPORT INFORMATION
  Report Type: 
  Country: None (occurrence: None)
  Receive Date: 20100423
  Receipt Date: 20100419
  Transmission Date: 20101027
  Serious: Yes (Other)
  Sender: FDA-Public Use
  Company Number: CA-JNJCH-2010009555

PATIENT
  Age: 68 Year
  Sex: Male
  Weight: 104.3 kg

DRUGS (4)
  1. FRESHBURST LISTERINE ANTISEPTIC [Suspect]
     Indication: DRUG USE FOR UNKNOWN INDICATION
     Dosage: TEXT:ABOUT 8 OUNCES ONE TIME
     Route: 048
     Dates: start: 20100416, end: 20100416
  2. ALCOHOL [Suspect]
     Indication: ALCOHOL USE
     Dosage: TEXT:3 BEERS
     Route: 048
  3. LIPITOR [Concomitant]
     Indication: BLOOD CHOLESTEROL
     Dosage: TEXT:UNKNOWN
     Route: 065
  4. ANTIHYPERTENSIVES [Concomitant]
     Indication: HYPERTENSION
     Dosage: TEXT:UNKNOWN
     Route: 065

REACTIONS (3)
  - ACTIVITIES OF DAILY LIVING IMPAIRED [None]
  - BREATH ALCOHOL TEST POSITIVE [None]
  - INCORRECT ROUTE OF DRUG ADMINISTRATION [None]
